FAERS Safety Report 4679798-3 (Version None)
Quarter: 2005Q2

REPORT INFORMATION
  Report Type: 
  Country: None (occurrence: None)
  Receive Date: 20050602
  Receipt Date: 20050531
  Transmission Date: 20051028
  Serious: Yes (Death, Hospitalization, Other)
  Sender: FDA-Public Use
  Company Number: US-MERCK-0505USA03504

PATIENT
  Age: 79 Year
  Sex: Female
  Weight: 82 kg

DRUGS (13)
  1. DECADRON [Suspect]
     Indication: METASTASES TO CENTRAL NERVOUS SYSTEM
     Route: 048
  2. TEMOZOLOMIDE [Suspect]
     Indication: METASTASES TO CENTRAL NERVOUS SYSTEM
     Route: 048
     Dates: start: 20050317, end: 20050404
  3. PREDNISONE [Suspect]
     Indication: METASTASES TO CENTRAL NERVOUS SYSTEM
     Route: 048
  4. ADVAIR DISKUS 100/50 [Concomitant]
     Route: 065
  5. CARDIZEM [Concomitant]
     Route: 065
  6. PAXIL [Concomitant]
     Route: 065
  7. K-LYTE [Concomitant]
     Route: 065
  8. PROTONIX [Concomitant]
     Route: 048
  9. VITRON-C [Concomitant]
     Route: 065
  10. TYLENOL W/ CODEINE NO. 3 [Concomitant]
     Route: 065
  11. AMBIEN [Concomitant]
     Route: 065
  12. TYLENOL (CAPLET) [Concomitant]
     Route: 065
  13. PHENERGAN TABLETS/SUPPOSITORIES [Concomitant]
     Route: 065

REACTIONS (16)
  - ACUTE PRERENAL FAILURE [None]
  - ASTHENIA [None]
  - BLOOD PRESSURE DECREASED [None]
  - CANDIDIASIS [None]
  - CHEST DISCOMFORT [None]
  - DEEP VEIN THROMBOSIS [None]
  - DEHYDRATION [None]
  - DIABETES MELLITUS INADEQUATE CONTROL [None]
  - DYSLIPIDAEMIA [None]
  - DYSPNOEA [None]
  - GAIT DISTURBANCE [None]
  - HAEMATOCHEZIA [None]
  - LETHARGY [None]
  - MENTAL STATUS CHANGES [None]
  - PNEUMONIA STAPHYLOCOCCAL [None]
  - RESPIRATORY RATE INCREASED [None]
